FAERS Safety Report 7007904-4 (Version None)
Quarter: 2010Q3

REPORT INFORMATION
  Report Type: 
  Country: None (occurrence: None)
  Receive Date: 20100922
  Receipt Date: 20100921
  Transmission Date: 20110219
  Serious: Yes (Death)
  Sender: FDA-Public Use
  Company Number: CO-ROCHE-728370

PATIENT
  Sex: Female

DRUGS (1)
  1. AVASTIN [Suspect]
     Indication: BREAST CANCER
     Dosage: FREQUENCY REPORTED AS Q14, LAST INFUSION 25 AUGUST 2010
     Route: 042
     Dates: start: 20100721, end: 20100825

REACTIONS (1)
  - MALIGNANT NEOPLASM PROGRESSION [None]
